FAERS Safety Report 8197532-X (Version None)
Quarter: 2012Q1

REPORT INFORMATION
  Report Type: 
  Country: None (occurrence: None)
  Receive Date: 20120309
  Receipt Date: 20120305
  Transmission Date: 20120608
  Serious: Yes (Other)
  Sender: FDA-Public Use
  Company Number: US-ROCHE-1046532

PATIENT
  Sex: Male

DRUGS (2)
  1. RIBAVIRIN [Suspect]
     Indication: HEPATITIS C
  2. PEGASYS [Suspect]
     Indication: HEPATITIS C
     Dates: start: 20110819

REACTIONS (5)
  - APPENDICECTOMY [None]
  - EYE IRRITATION [None]
  - VISION BLURRED [None]
  - INSOMNIA [None]
  - NAUSEA [None]
